FAERS Safety Report 6371692-5 (Version None)
Quarter: 2009Q3

REPORT INFORMATION
  Report Type: 
  Country: None (occurrence: None)
  Receive Date: 20090923
  Receipt Date: 20080829
  Transmission Date: 20100115
  Serious: Yes (Other)
  Sender: FDA-Public Use
  Company Number: US-ASTRAZENECA-2008UW08981

PATIENT
  Age: 13473 Day
  Sex: Female
  Weight: 99.3 kg

DRUGS (12)
  1. SEROQUEL [Suspect]
     Indication: BIPOLAR DISORDER
     Route: 048
     Dates: start: 19950601, end: 20001001
  2. SEROQUEL [Suspect]
     Route: 048
     Dates: start: 20001001, end: 20050701
  3. SEROQUEL [Suspect]
     Route: 048
     Dates: start: 20050801, end: 20080601
  4. ABILIFY [Concomitant]
     Dates: start: 20060101
  5. HALDOL [Concomitant]
     Dates: start: 19820101
  6. NAVANE [Concomitant]
     Dates: start: 20010101
  7. RISPERDAL [Concomitant]
     Dates: start: 20000101
  8. ZYPREXA [Concomitant]
     Dates: start: 20020101
  9. LITHIUM [Concomitant]
     Dates: start: 19900101, end: 20030101
  10. DEPAKOTE [Concomitant]
  11. MELLARIL [Concomitant]
  12. KLONOPIN [Concomitant]

REACTIONS (3)
  - ABNORMAL WEIGHT GAIN [None]
  - TARDIVE DYSKINESIA [None]
  - TYPE 2 DIABETES MELLITUS [None]
